FAERS Safety Report 17329249 (Version 6)
Quarter: 2021Q1

REPORT INFORMATION
  Report Type: Spontaneous
  Country: US (occurrence: US)
  Receive Date: 20200127
  Receipt Date: 20210210
  Transmission Date: 20210419
  Serious: No
  Sender: FDA-Public Use
  Company Number: US-SA-2020SA014544

PATIENT
  Age: 67 Year
  Sex: Male

DRUGS (1)
  1. DUPIXENT [Suspect]
     Active Substance: DUPILUMAB
     Indication: ASTHMA
     Dosage: 300 MG, QOW
     Route: 058
     Dates: start: 20191105

REACTIONS (8)
  - Injection site pain [Not Recovered/Not Resolved]
  - Rhinorrhoea [Recovering/Resolving]
  - Fatigue [Unknown]
  - Product dose omission issue [Unknown]
  - Dry throat [Recovering/Resolving]
  - Injection site pain [Unknown]
  - Nasal congestion [Recovering/Resolving]
  - Nocturnal dyspnoea [Recovering/Resolving]

NARRATIVE: CASE EVENT DATE: 20200112
